FAERS Safety Report 6421841-5 (Version None)
Quarter: 2009Q4

REPORT INFORMATION
  Report Type: 
  Country: None (occurrence: None)
  Receive Date: 20091030
  Receipt Date: 20091020
  Transmission Date: 20100525
  Serious: Yes (Other)
  Sender: FDA-Public Use
  Company Number: US-JNJCH-2009019085

PATIENT
  Sex: Female
  Weight: 72.6 kg

DRUGS (2)
  1. VISINE-A [Suspect]
     Indication: HYPERSENSITIVITY
     Dosage: TEXT:1 DROP IN EACH EYE ONCE
     Route: 047
     Dates: start: 20090711, end: 20090711
  2. CLARITIN [Suspect]
     Indication: HYPERSENSITIVITY
     Dosage: TEXT:1 PILL 1X PER DAY
     Route: 048
     Dates: start: 20090711, end: 20090711

REACTIONS (4)
  - BURNING SENSATION [None]
  - DRUG EXPOSURE DURING PREGNANCY [None]
  - MYDRIASIS [None]
  - VISION BLURRED [None]
